FAERS Safety Report 14878370 (Version 1)
Quarter: 2018Q2

REPORT INFORMATION
  Report Type: Report from Study
  Country: None (occurrence: RO)
  Receive Date: 20180511
  Receipt Date: 20180511
  Transmission Date: 20180711
  Serious: Yes (Hospitalization, Other)
  Sender: FDA-Public Use
  Company Number: RO-ABBVIE-18K-135-2350073-00

PATIENT
  Age: 68 Year
  Sex: Female

DRUGS (4)
  1. MONOPOST [Concomitant]
     Indication: GLAUCOMA
     Route: 047
  2. HUMIRA [Suspect]
     Active Substance: ADALIMUMAB
     Indication: CROHN^S DISEASE
     Route: 058
     Dates: start: 20170714
  3. BILOBIL [Concomitant]
     Active Substance: GINKGO
     Indication: VERTIGO
     Dosage: 15 YEARS BEFORE REPORT
     Route: 048
  4. BETASERC [Concomitant]
     Active Substance: BETAHISTINE
     Indication: VERTIGO
     Dosage: 15 YEARS BEFORE REPORT
     Route: 048

REACTIONS (6)
  - Inappropriate schedule of drug administration [Recovered/Resolved]
  - Anaemia [Recovering/Resolving]
  - Haematochezia [Recovered/Resolved]
  - Fatigue [Recovering/Resolving]
  - Biliary colic [Recovered/Resolved]
  - Red blood cell sedimentation rate increased [Recovered/Resolved]

NARRATIVE: CASE EVENT DATE: 201804
